FAERS Safety Report 24782689 (Version 2)
Quarter: 2025Q1

REPORT INFORMATION
  Report Type: Report from Study
  Country: US (occurrence: US)
  Receive Date: 20241227
  Receipt Date: 20250108
  Transmission Date: 20250409
  Serious: Yes (Death, Hospitalization, Other)
  Sender: BAYER HEALTHCARE PHARMACEUTICALS INC.
  Company Number: US-BAYER-2024A166568

PATIENT
  Age: 79 Year
  Sex: Male

DRUGS (1)
  1. KERENDIA [Suspect]
     Active Substance: FINERENONE
     Indication: Cardiac failure
     Dosage: 10 MG, QD
     Route: 048

REACTIONS (11)
  - Death [Fatal]
  - Respiratory failure [None]
  - Dyspnoea [None]
  - Cardiac disorder [None]
  - Chronic kidney disease [None]
  - Palpitations [None]
  - Regurgitation [None]
  - Acute myocardial infarction [None]
  - Acute kidney injury [None]
  - Chronic obstructive pulmonary disease [None]
  - Cardiac failure congestive [None]

NARRATIVE: CASE EVENT DATE: 20241110
